FAERS Safety Report 10146399 (Version 3)
Quarter: 2014Q3

REPORT INFORMATION
  Report Type: Spontaneous
  Country: US (occurrence: US)
  Receive Date: 20140501
  Receipt Date: 20140909
  Transmission Date: 20150326
  Serious: Yes (Hospitalization, Other)
  Sender: FDA-Public Use
  Company Number: US-PFIZER INC-2014116726

PATIENT
  Age: 78 Year
  Sex: Female
  Weight: 62.13 kg

DRUGS (21)
  1. ROBITUSSIN COUGH LONG-ACTING [Suspect]
     Active Substance: DEXTROMETHORPHAN HYDROBROMIDE
     Indication: COUGH
     Dosage: UNK
     Route: 048
     Dates: start: 20140422, end: 20140422
  2. ATENOLOL. [Concomitant]
     Active Substance: ATENOLOL
     Indication: BLOOD PRESSURE ABNORMAL
     Dosage: 100 MG (50MG X 2) IN THE MORNING AND 50MG AT NIGHT, 2X/DAY
  3. CALCIUM 600 WITH VITAMIN D3 [Concomitant]
     Active Substance: CALCIUM CARBONATE\VITAMIN D
     Dosage: 1 DF, DAILY (600MG (1,500MG) -400 UNIT CAP)
     Route: 048
  4. PENLAC [Concomitant]
     Active Substance: CICLOPIROX
     Indication: ONYCHOMYCOSIS
     Dosage: UNK, (8 % SOLUTION, APPLY TO THE SKIN NIGHTLY. APPLY OVER NAIL AND SURROUNDING SKIN)
  5. ROBITUSSIN COUGH LONG-ACTING [Suspect]
     Active Substance: DEXTROMETHORPHAN HYDROBROMIDE
     Indication: NASAL CONGESTION
  6. NORVASC [Concomitant]
     Active Substance: AMLODIPINE BESYLATE
     Dosage: 5 MG, DAILY
     Route: 048
  7. MIRALAX ORAL [Concomitant]
     Dosage: UNK, DAILY
     Route: 048
  8. BIOPLASMA [Concomitant]
     Indication: HYPONATRAEMIA
     Dosage: 4 DF, DAILY
     Route: 060
  9. ROBITUSSIN (GUAIFENESIN) [Interacting]
     Active Substance: GUAIFENESIN
     Dosage: UNK
  10. METOPROLOL TARTRATE. [Interacting]
     Active Substance: METOPROLOL TARTRATE
     Dosage: UNK
  11. LIPITOR [Concomitant]
     Active Substance: ATORVASTATIN CALCIUM
     Dosage: 20 MG, DAILY
     Route: 048
  12. SYNTHROID [Concomitant]
     Active Substance: LEVOTHYROXINE SODIUM
     Dosage: 25 UG, DAILY
     Route: 048
  13. XANAX [Concomitant]
     Active Substance: ALPRAZOLAM
     Indication: ANXIETY
     Dosage: 0.25 MG, 2X/DAY
     Route: 048
  14. FUROSEMIDE. [Suspect]
     Active Substance: FUROSEMIDE
  15. ATENOLOL. [Concomitant]
     Active Substance: ATENOLOL
     Indication: ATRIAL FIBRILLATION
  16. ATORVASTAIN CALCIUM [Concomitant]
     Dosage: 20 MG, UNK
     Dates: start: 2014
  17. TENORMIN [Concomitant]
     Active Substance: ATENOLOL
     Dosage: 200 MG, (50 MG TABLET, 2 TABS AM, A TAB PM)
  18. CYANOCOBALAMIN. [Concomitant]
     Active Substance: CYANOCOBALAMIN
     Dosage: 1 ML (1000 MCG TOTAL), UNK (INTO THE MUSCLE EVERY 30 (THIRTY) DAYS)
     Route: 030
  19. ASPIRIN. [Concomitant]
     Active Substance: ASPIRIN
     Dosage: 81 MG, DAILY
     Route: 048
  20. VITAMIN D3 [Concomitant]
     Active Substance: CHOLECALCIFEROL
     Dosage: 1000 UNIT CAPSULE AT 2000 UNITS BY MOUTH 2 (TWO) TIMES DAILY WITH MEALS  (LUNCH AND DINNER)
     Route: 048
  21. XARELTO [Concomitant]
     Active Substance: RIVAROXABAN
     Dosage: 20 MG, UNK
     Route: 048

REACTIONS (10)
  - Loss of consciousness [Unknown]
  - Drug interaction [Unknown]
  - Vomiting [Unknown]
  - Idiosyncratic drug reaction [Unknown]
  - Nausea [Unknown]
  - Nervousness [Unknown]
  - Anxiety [Unknown]
  - Asthenia [Unknown]
  - Ejection fraction abnormal [Unknown]
  - Drug hypersensitivity [Unknown]

NARRATIVE: CASE EVENT DATE: 2014
